FAERS Safety Report 6941796-4 (Version None)
Quarter: 2010Q3

REPORT INFORMATION
  Report Type: 
  Country: None (occurrence: None)
  Receive Date: 20100826
  Receipt Date: 20100818
  Transmission Date: 20110219
  Serious: Yes (Hospitalization)
  Sender: FDA-Public Use
  Company Number: FR-PFIZER INC-2010103721

PATIENT
  Age: 66 Year
  Sex: Male

DRUGS (7)
  1. TAHOR [Suspect]
     Indication: HYPERCHOLESTEROLAEMIA
     Dosage: 10 MG, 1X/DAY
     Route: 048
  2. PRADAXA [Suspect]
     Indication: THROMBOSIS PROPHYLAXIS
     Dosage: 2 DF PER DAY
     Route: 048
     Dates: start: 20091201, end: 20091208
  3. FUMAFER [Concomitant]
     Dosage: 3 DF PER DAY
     Route: 048
  4. IXPRIM [Concomitant]
     Indication: PAIN
     Dosage: 6 DF MAX PER DAY
     Route: 048
     Dates: start: 20091201
  5. KARDEGIC [Concomitant]
     Indication: CARDIOVASCULAR EVENT PROPHYLAXIS
     Dosage: UNK
     Route: 048
  6. DILTIAZEM HCL [Concomitant]
     Dosage: UNK
     Route: 048
  7. EZETROL [Concomitant]
     Indication: HYPERCHOLESTEROLAEMIA
     Dosage: 10 MG, 1X/DAY
     Route: 048

REACTIONS (1)
  - ACTIVATED PARTIAL THROMBOPLASTIN TIME PROLONGED [None]
